FAERS Safety Report 17348151 (Version 1)
Quarter: 2020Q1

REPORT INFORMATION
  Report Type: Spontaneous
  Country: PE (occurrence: PE)
  Receive Date: 20200130
  Receipt Date: 20200130
  Transmission Date: 20200409
  Serious: Yes (Death, Life-Threatening, Hospitalization)
  Sender: FDA-Public Use
  Company Number: PE-ASTRAZENECA-2020SE14410

PATIENT
  Age: 125 Day
  Sex: Male

DRUGS (7)
  1. LEVOTHYROXINE. [Concomitant]
     Active Substance: LEVOTHYROXINE
     Indication: TRANSIENT HYPOTHYROXINAEMIA OF PREMATURITY
     Dosage: UNKNOWN
     Route: 065
  2. ROTAVIRUS VACCINE [Concomitant]
     Active Substance: HUMAN ROTAVIRUS A
     Indication: IMMUNISATION
     Route: 065
     Dates: start: 20160317
  3. SYNAGIS [Suspect]
     Active Substance: PALIVIZUMAB
     Indication: BRONCHOPULMONARY DYSPLASIA
     Route: 030
     Dates: start: 20160111
  4. SYNAGIS [Suspect]
     Active Substance: PALIVIZUMAB
     Indication: PREMATURE BABY
     Route: 030
     Dates: start: 20160111
  5. PULMONARY SURFACTANT NOS [Concomitant]
     Indication: NEONATAL RESPIRATORY DISTRESS SYNDROME
     Dosage: UNKNOWN
     Route: 065
  6. SPIRONOLACTONE. [Concomitant]
     Active Substance: SPIRONOLACTONE
     Indication: PRODUCT USED FOR UNKNOWN INDICATION
     Route: 065
     Dates: start: 20160317
  7. PNEUMOCOCCAL VACCINE POLYVALENT NOS [Concomitant]
     Active Substance: PNEUMOCOCCAL VACCINE POLYVALENT
     Indication: IMMUNISATION
     Dosage: 1.0ML UNKNOWN
     Route: 065
     Dates: start: 20160310

REACTIONS (22)
  - Cystic lung disease [Unknown]
  - Bronchitis [Recovered/Resolved]
  - Dysphonia [Recovered/Resolved]
  - Cyanosis [Unknown]
  - Atelectasis [Unknown]
  - Klebsiella infection [Fatal]
  - Disseminated intravascular coagulation [Unknown]
  - Pyrexia [Recovered/Resolved]
  - Bronchospasm [Recovered/Resolved]
  - Respiratory distress [Recovered/Resolved]
  - Swelling [Recovered/Resolved]
  - Unevaluable event [Unknown]
  - Neonatal hypoxia [Recovered/Resolved]
  - Muscle spasms [Unknown]
  - Septic shock [Fatal]
  - Mechanical ventilation [Unknown]
  - Candida infection [Unknown]
  - Multiple organ dysfunction syndrome [Fatal]
  - Central venous catheterisation [Recovered/Resolved]
  - Respiratory syncytial virus bronchiolitis [Unknown]
  - Productive cough [Unknown]
  - Nasopharyngitis [Unknown]

NARRATIVE: CASE EVENT DATE: 20160201
